FAERS Safety Report 12707788 (Version 2)
Quarter: 2016Q3

REPORT INFORMATION
  Report Type: Spontaneous
  Country: JP (occurrence: JP)
  Receive Date: 20160901
  Receipt Date: 20160914
  Transmission Date: 20161109
  Serious: No
  Sender: FDA-Public Use
  Company Number: JP-ELI_LILLY_AND_COMPANY-JP201608011840

PATIENT
  Age: 73 Year
  Sex: Male

DRUGS (1)
  1. ZALUTIA [Suspect]
     Active Substance: TADALAFIL
     Indication: PRODUCT USED FOR UNKNOWN INDICATION
     Dosage: 5 MG, QD
     Route: 048

REACTIONS (4)
  - Gastrooesophageal reflux disease [Unknown]
  - Vision blurred [Unknown]
  - Dizziness [Unknown]
  - Nausea [Unknown]
